FAERS Safety Report 7688321-0 (Version None)
Quarter: 2011Q3

REPORT INFORMATION
  Report Type: 
  Country: None (occurrence: None)
  Receive Date: 20110817
  Receipt Date: 20110811
  Transmission Date: 20111222
  Serious: Yes (Other)
  Sender: FDA-Public Use
  Company Number: US-PFIZER INC-2011185038

PATIENT
  Sex: Female
  Weight: 68 kg

DRUGS (6)
  1. PREMARIN [Suspect]
     Indication: VULVOVAGINAL DRYNESS
     Dosage: 3X/WEEK
     Route: 067
     Dates: start: 20100701, end: 20110701
  2. LEVOTHYROXINE SODIUM [Concomitant]
     Indication: HYPOTHYROIDISM
     Dosage: 50 UG, DAILY
  3. AMLODIPINE BESILATE [Concomitant]
     Indication: HYPERTENSION
     Dosage: 5 MG,  DAILY
     Dates: start: 20110601
  4. CLEOCIN HYDROCHLORIDE [Suspect]
     Indication: VAGINAL INFECTION
     Dosage: UNK
     Dates: start: 20110715, end: 20110715
  5. MONISTAT [Suspect]
     Indication: VAGINAL INFECTION
     Dosage: UNK
     Route: 067
     Dates: start: 20110704, end: 20110704
  6. METOPROLOL [Concomitant]
     Indication: HYPERTENSION
     Dosage: 25 MG, 2X/DAY

REACTIONS (9)
  - FEELING ABNORMAL [None]
  - DIZZINESS [None]
  - VAGINAL INFECTION [None]
  - VULVOVAGINAL BURNING SENSATION [None]
  - PYREXIA [None]
  - VISUAL IMPAIRMENT [None]
  - VAGINAL DISCHARGE [None]
  - VISION BLURRED [None]
  - NAUSEA [None]
